FAERS Safety Report 20281921 (Version 3)
Quarter: 2022Q1

REPORT INFORMATION
  Report Type: Report from Study
  Country: US (occurrence: None)
  Receive Date: 20220103
  Receipt Date: 20220227
  Transmission Date: 20220423
  Serious: Yes (Hospitalization, Other)
  Sender: FDA-Public Use
  Company Number: US-ROCHE-2987313

PATIENT
  Age: 71 Year
  Sex: Female
  Weight: 78 kg

DRUGS (4)
  1. ATEZOLIZUMAB [Suspect]
     Active Substance: ATEZOLIZUMAB
     Indication: Adenocarcinoma of colon
     Dosage: DATE OF MOST RECENT DOSE PRIOR TO AE AND SAE ON 01/OCT/-2021
     Route: 041
     Dates: start: 20210521
  2. LEUCOVORIN CALCIUM [Suspect]
     Active Substance: LEUCOVORIN CALCIUM
     Indication: Adenocarcinoma of colon
     Dosage: DATE OF MOST RECENT DOSE PRIOR TO AE AND SAE ON 29/OCT/2021 (704 MG)
     Route: 042
     Dates: start: 20210521, end: 20211029
  3. FLUOROURACIL [Suspect]
     Active Substance: FLUOROURACIL
     Indication: Adenocarcinoma of colon
     Dosage: FOLLOWED BY 2400MG/M2 IV OVER 46 HOURS DAYS 1-3?DATE OF MOST RECENT DOSE PRIOR TO AE AND SAE ON 29/O
     Route: 040
     Dates: start: 20210521, end: 20211031
  4. OXALIPLATIN [Suspect]
     Active Substance: OXALIPLATIN
     Indication: Adenocarcinoma of colon
     Dosage: DATE OF MOST RECENT DOSE PRIOR TO AE AND SAE ON 29/OCT/2021 (114.5 MG)
     Route: 042
     Dates: start: 20210521, end: 20211029

REACTIONS (7)
  - Hypokalaemia [Unknown]
  - Blood bilirubin increased [Recovered/Resolved]
  - Dehydration [Recovered/Resolved]
  - Electrocardiogram QT prolonged [Unknown]
  - Nausea [Recovered/Resolved]
  - Vomiting [Recovered/Resolved]
  - Neutrophil count decreased [Unknown]

NARRATIVE: CASE EVENT DATE: 20210604
